FAERS Safety Report 5069492-1 (Version None)
Quarter: 2006Q3

REPORT INFORMATION
  Report Type: 
  Country: None (occurrence: None)
  Receive Date: 20060714
  Receipt Date: 20060320
  Transmission Date: 20061208
  Serious: No
  Sender: FDA-Public Use
  Company Number: 2006SP001317

PATIENT
  Age: 73 Year
  Sex: Male
  Weight: 81.6475 kg

DRUGS (6)
  1. LUNESTA [Suspect]
     Indication: INSOMNIA
     Dosage: 2 MG;HS;ORAL
     Route: 048
     Dates: start: 20060314, end: 20060317
  2. ANTIHYPERTENSIVES [Concomitant]
  3. SERUMLIPIDREDUCING AGENTS [Concomitant]
  4. ANTIDEPRESSANTS [Concomitant]
  5. DRUG USED IN DIABETES [Concomitant]
  6. VALIUM [Concomitant]

REACTIONS (2)
  - DYSGEUSIA [None]
  - INSOMNIA [None]
